FAERS Safety Report 10956288 (Version 2)
Quarter: 2015Q2

REPORT INFORMATION
  Report Type: Spontaneous
  Country: IT (occurrence: IT)
  Receive Date: 20150326
  Receipt Date: 20150406
  Transmission Date: 20150821
  Serious: Yes (Death, Hospitalization)
  Sender: FDA-Public Use
  Company Number: IT-ELI_LILLY_AND_COMPANY-IT201503007305

PATIENT
  Age: 69 Year
  Sex: Female

DRUGS (2)
  1. ALIMTA [Suspect]
     Active Substance: PEMETREXED DISODIUM
     Indication: LUNG CANCER METASTATIC
     Dosage: 755 MG, MONTHLY (1/M)
     Route: 042
     Dates: start: 20150226, end: 20150226
  2. CISPLATIN. [Suspect]
     Active Substance: CISPLATIN
     Indication: LUNG CANCER METASTATIC
     Dosage: 112 MG, MONTHLY (1/M)
     Route: 042
     Dates: start: 20150226, end: 20150226

REACTIONS (12)
  - Dysentery [Unknown]
  - Pyrexia [Unknown]
  - Hyponatraemia [Unknown]
  - Anaemia [Unknown]
  - Vomiting [Unknown]
  - Acute respiratory failure [Fatal]
  - Pleural effusion [Fatal]
  - Malignant neoplasm progression [Fatal]
  - Leukopenia [Recovered/Resolved]
  - Cystitis escherichia [Unknown]
  - Thrombocytopenia [Recovered/Resolved]
  - Hypokalaemia [Unknown]

NARRATIVE: CASE EVENT DATE: 20150304
